FAERS Safety Report 7496139-7 (Version None)
Quarter: 2011Q2

REPORT INFORMATION
  Report Type: 
  Country: None (occurrence: None)
  Receive Date: 20110523
  Receipt Date: 20110509
  Transmission Date: 20111010
  Serious: Yes (Hospitalization, Other)
  Sender: FDA-Public Use
  Company Number: PHHY2011BR40514

PATIENT
  Sex: Male

DRUGS (6)
  1. EXELON [Suspect]
     Indication: PARKINSON'S DISEASE
     Dosage: 3 MG, UNK
     Route: 048
  2. DORMONID [Concomitant]
     Dosage: 7.5 MG, UNK
  3. MOTILIUM [Concomitant]
     Dosage: 10 MG, UNK
  4. PANTOPRAZOLE [Concomitant]
     Dosage: 20 MG, UNK
  5. PROLOPA [Suspect]
     Indication: PARKINSON'S DISEASE
     Dosage: 2 DF, QD
     Route: 048
     Dates: start: 20100501
  6. MEMANTINE HYDROCHLORIDE [Suspect]
     Indication: PARKINSON'S DISEASE
     Dosage: 1 DF, QD
     Route: 048
     Dates: start: 20100601

REACTIONS (11)
  - BLOOD PRESSURE INCREASED [None]
  - PURULENT DISCHARGE [None]
  - CHOLELITHIASIS [None]
  - URINARY TRACT INFECTION [None]
  - MENINGITIS NONINFECTIVE [None]
  - HEADACHE [None]
  - DIARRHOEA [None]
  - POSTOPERATIVE WOUND INFECTION [None]
  - SUTURE RUPTURE [None]
  - VOMITING [None]
  - PNEUMONIA [None]
